FAERS Safety Report 7291535-5 (Version None)
Quarter: 2011Q1

REPORT INFORMATION
  Report Type: 
  Country: None (occurrence: None)
  Receive Date: 20110214
  Receipt Date: 20110202
  Transmission Date: 20110831
  Serious: Yes (Other)
  Sender: FDA-Public Use
  Company Number: US-ELI_LILLY_AND_COMPANY-US201102001345

PATIENT
  Age: 25 Year
  Sex: Male

DRUGS (1)
  1. PROZAC [Suspect]
     Dates: end: 20010101

REACTIONS (4)
  - SUICIDE ATTEMPT [None]
  - ALCOHOL ABUSE [None]
  - EMOTIONAL DISORDER [None]
  - DRUG WITHDRAWAL SYNDROME [None]
